FAERS Safety Report 7051658-2 (Version None)
Quarter: 2010Q4

REPORT INFORMATION
  Report Type: 
  Country: None (occurrence: None)
  Receive Date: 20101018
  Receipt Date: 20101018
  Transmission Date: 20110411
  Serious: No
  Sender: FDA-Public Use
  Company Number: None

PATIENT
  Age: 62 Year
  Sex: Male
  Weight: 77.1115 kg

DRUGS (1)
  1. OXYCONTIN [Suspect]

REACTIONS (4)
  - CONDITION AGGRAVATED [None]
  - INSOMNIA [None]
  - PAIN [None]
  - POOR QUALITY SLEEP [None]
